FAERS Safety Report 14021229 (Version 1)
Quarter: 2017Q3

REPORT INFORMATION
  Report Type: Spontaneous
  Country: US (occurrence: US)
  Receive Date: 20170928
  Receipt Date: 20170928
  Transmission Date: 20171128
  Serious: No
  Sender: FDA-Public Use
  Company Number: US-ROCHE-GNE306189

PATIENT
  Age: 51 Year
  Sex: Female

DRUGS (1)
  1. LUCENTIS [Suspect]
     Active Substance: RANIBIZUMAB
     Indication: NEOVASCULAR AGE-RELATED MACULAR DEGENERATION
     Dosage: 0.5 MG, SINGLE
     Route: 050
     Dates: start: 20100814, end: 20100815

REACTIONS (5)
  - Endophthalmitis [None]
  - Ocular hyperaemia [None]
  - Staphylococcal infection [Recovering/Resolving]
  - Vision blurred [None]
  - Foreign body in eye [None]

NARRATIVE: CASE EVENT DATE: 20100814
